FAERS Safety Report 18505061 (Version 1)
Quarter: 2020Q4

REPORT INFORMATION
  Report Type: Spontaneous
  Country: US (occurrence: US)
  Receive Date: 20201116
  Receipt Date: 20201116
  Transmission Date: 20210114
  Serious: No
  Sender: FDA-Public Use
  Company Number: US-JNJFOC-20201112535

PATIENT
  Age: 72 Year
  Sex: Male
  Weight: 86.26 kg

DRUGS (1)
  1. ZYRTEC [Suspect]
     Active Substance: CETIRIZINE HYDROCHLORIDE
     Indication: MULTIPLE ALLERGIES
     Dosage: 1 TABLET; DATE LAST ADMINISTERED: 05/NOV/2020
     Route: 048
     Dates: start: 20201025

REACTIONS (1)
  - Drug ineffective [Unknown]
